FAERS Safety Report 8583067-9 (Version None)
Quarter: 2012Q3

REPORT INFORMATION
  Report Type: 
  Country: None (occurrence: None)
  Receive Date: 20120727
  Receipt Date: 20120717
  Transmission Date: 20120928
  Serious: Yes (Death, Other)
  Sender: FDA-Public Use
  Company Number: AUR-APL-2012-02667

PATIENT
  Age: 43 Year
  Sex: Female
  Weight: 63 kg

DRUGS (7)
  1. MEBEVERINE (MEBEVERINE) [Concomitant]
  2. ACETAMINOPHEN W/ CODEINE [Concomitant]
  3. MIRTAZAPINE [Concomitant]
  4. XENICAL [Concomitant]
  5. RISPERIDONE [Suspect]
     Indication: SCHIZOPHRENIA
     Dosage: 2 MG (1 MG,2 IN 1 D),ORAL
     Route: 048
     Dates: start: 20120105, end: 20120106
  6. ANOHEAL (DILTIAZEM HYDROCHLORIDE) [Concomitant]
  7. RISPERDAL CONSTA [Suspect]
     Indication: SCHIZOPHRENIA
     Dosage: 0.2857 DOSAGE FORMS (1 DOSAGE FORMS,2 IN 1
     Dates: end: 20120104

REACTIONS (3)
  - BLOOD PROLACTIN INCREASED [None]
  - UNRESPONSIVE TO STIMULI [None]
  - OVERDOSE [None]
